FAERS Safety Report 8407968-7 (Version None)
Quarter: 2012Q2

REPORT INFORMATION
  Report Type: 
  Country: None (occurrence: None)
  Receive Date: 20120604
  Receipt Date: 20120528
  Transmission Date: 20120825
  Serious: Yes (Hospitalization, Other)
  Sender: FDA-Public Use
  Company Number: US-TEVA-340394USA

PATIENT
  Age: 18 Year
  Sex: Female

DRUGS (3)
  1. AMLODIPINE [Suspect]
  2. GLYCINE MAX SEED OIL [Suspect]
     Indication: CIRCULATORY COLLAPSE
     Dosage: 20% (20 G/DL) CONCENTRATION OF LIPID EMULSION; BOLUS (X2)
     Route: 040
  3. LISINOPRIL [Suspect]

REACTIONS (3)
  - CIRCULATORY COLLAPSE [None]
  - SHOCK [None]
  - ACUTE LUNG INJURY [None]
